FAERS Safety Report 7432094-3 (Version None)
Quarter: 2011Q2

REPORT INFORMATION
  Report Type: 
  Country: None (occurrence: None)
  Receive Date: 20110422
  Receipt Date: 20110420
  Transmission Date: 20111010
  Serious: Yes (Death)
  Sender: FDA-Public Use
  Company Number: US-B.I. PHARMACEUTICALS,INC./RIDGEFIELD-2011-BP-11336BP

PATIENT

DRUGS (1)
  1. PRADAXA [Suspect]

REACTIONS (6)
  - INTESTINAL HAEMORRHAGE [None]
  - MOUTH HAEMORRHAGE [None]
  - DIZZINESS [None]
  - DEATH [None]
  - GASTRIC HAEMORRHAGE [None]
  - HYPERTENSION [None]
